FAERS Safety Report 9611104 (Version 1)
Quarter: 2013Q4

REPORT INFORMATION
  Report Type: Spontaneous
  Country: US (occurrence: US)
  Receive Date: 20131009
  Receipt Date: 20131009
  Transmission Date: 20140711
  Serious: No
  Sender: FDA-Public Use
  Company Number: US-009507513-1310USA000618

PATIENT
  Sex: Female

DRUGS (6)
  1. JANUVIA [Suspect]
     Dosage: UNK
     Route: 048
  2. AVANDAMET [Suspect]
     Dosage: 2000 MG, BID
  3. ACTOS [Suspect]
     Dosage: UNK
  4. METFORMIN [Suspect]
     Dosage: UNK
  5. INSULIN [Suspect]
     Dosage: UNK
  6. LANTUS [Suspect]
     Dosage: UNK

REACTIONS (6)
  - Blood glucose abnormal [Unknown]
  - Weight loss poor [Unknown]
  - Weight increased [Unknown]
  - Malaise [Unknown]
  - Chest pain [Unknown]
  - Dyspnoea [Unknown]
